FAERS Safety Report 21324396 (Version 1)
Quarter: 2022Q3

REPORT INFORMATION
  Report Type: Spontaneous
  Country: US (occurrence: None)
  Receive Date: 20220911
  Receipt Date: 20220911
  Transmission Date: 20221026
  Serious: Yes (Life-Threatening, Disabling, Other)
  Sender: FDA-Public Use
  Company Number: None

PATIENT
  Age: 31 Year
  Sex: Female
  Weight: 60.75 kg

DRUGS (1)
  1. OMNICEF [Suspect]
     Active Substance: CEFDINIR
     Indication: Tonsillitis
     Dosage: OTHER QUANTITY : 1 CAPSULE(S);?FREQUENCY : EVERY 12 HOURS;?
     Route: 048
     Dates: start: 20220525, end: 20220604

REACTIONS (8)
  - Diarrhoea [None]
  - Diarrhoea [None]
  - Nausea [None]
  - Vomiting [None]
  - Abdominal pain [None]
  - Pyrexia [None]
  - Emotional distress [None]
  - Haematochezia [None]

NARRATIVE: CASE EVENT DATE: 20220601
